FAERS Safety Report 13098764 (Version 1)
Quarter: 2017Q1

REPORT INFORMATION
  Report Type: Spontaneous
  Country: ES (occurrence: ES)
  Receive Date: 20170109
  Receipt Date: 20170109
  Transmission Date: 20170428
  Serious: Yes (Hospitalization)
  Sender: FDA-Public Use
  Company Number: ES-MEDA-2017010013

PATIENT
  Age: 80 Year
  Sex: Female

DRUGS (9)
  1. NOVOMIX 30 FLEXPEN 100 U/ML [Concomitant]
     Dosage: 16-9-9
     Dates: start: 20090910
  2. EUTIROX 25 MCG [Concomitant]
     Dosage: 1 CP
     Dates: start: 20120412
  3. CARVEDILOL. [Suspect]
     Active Substance: CARVEDILOL
     Indication: HYPERTENSION
     Route: 048
     Dates: start: 20090910
  4. DILUTOL 10 MG [Suspect]
     Active Substance: TORSEMIDE
     Indication: PORTAL HYPERTENSION
     Route: 048
     Dates: start: 20150830, end: 20150930
  5. ALDACTONE [Suspect]
     Active Substance: SPIRONOLACTONE
     Indication: PORTAL HYPERTENSION
     Route: 048
     Dates: start: 20150920, end: 20150930
  6. PAROXETINE. [Concomitant]
     Active Substance: PAROXETINE
     Dates: start: 20120412
  7. FUROSEMIDA 40 MG [Suspect]
     Active Substance: FUROSEMIDE
     Indication: PORTAL HYPERTENSION
     Route: 048
     Dates: start: 20150920, end: 20150930
  8. LACTULOSA [Concomitant]
     Active Substance: LACTULOSE
     Dosage: 1-1-1
     Dates: start: 20120412
  9. ENALAPRIL [Suspect]
     Active Substance: ENALAPRIL
     Indication: HYPERTENSION
     Route: 048
     Dates: start: 20090910

REACTIONS (3)
  - Acute kidney injury [Recovered/Resolved]
  - Drug interaction [Recovered/Resolved]
  - Hepatic encephalopathy [Recovered/Resolved]

NARRATIVE: CASE EVENT DATE: 20150930
